FAERS Safety Report 4349781-6 (Version None)
Quarter: 2004Q2

REPORT INFORMATION
  Report Type: 
  Country: None (occurrence: None)
  Receive Date: 20040429
  Receipt Date: 20040420
  Transmission Date: 20050107
  Serious: Yes (Hospitalization)
  Sender: FDA-Public Use
  Company Number: BR-JNJFOC-20040405556

PATIENT
  Age: 17 Year
  Sex: Female
  Weight: 49 kg

DRUGS (2)
  1. HALDOL DECANOATE [Suspect]
     Route: 030
  2. FENERGAN [Concomitant]

REACTIONS (7)
  - FEEDING DISORDER [None]
  - MEDICATION ERROR [None]
  - MUSCLE RIGIDITY [None]
  - RENAL DISORDER [None]
  - SALIVARY HYPERSECRETION [None]
  - TREMOR [None]
  - URINARY INCONTINENCE [None]
